FAERS Safety Report 25103366 (Version 1)
Quarter: 2025Q1

REPORT INFORMATION
  Report Type: Spontaneous
  Country: MY (occurrence: MY)
  Receive Date: 20250321
  Receipt Date: 20250321
  Transmission Date: 20250409
  Serious: Yes (Other)
  Sender: ROCHE
  Company Number: MY-ROCHE-10000209900

PATIENT
  Age: 80 Year
  Sex: Female

DRUGS (1)
  1. VABYSMO [Suspect]
     Active Substance: FARICIMAB-SVOA
     Indication: Age-related macular degeneration
     Dosage: DOSE: 6MG/0.05 ML?2ND INJECTION ON: 13-JAN-2025?3RD INJECTION ON : 17-FEB-2025
     Route: 050
     Dates: start: 20241202

REACTIONS (2)
  - Visual impairment [Unknown]
  - Retinal exudates [Not Recovered/Not Resolved]

NARRATIVE: CASE EVENT DATE: 20250213
